FAERS Safety Report 18411811 (Version 1)
Quarter: 2020Q4

REPORT INFORMATION
  Report Type: Spontaneous
  Country: FR (occurrence: FR)
  Receive Date: 20201021
  Receipt Date: 20201021
  Transmission Date: 20210114
  Serious: Yes (Hospitalization)
  Sender: FDA-Public Use
  Company Number: FR-BAUSCH-BL-2020-029693

PATIENT
  Age: 71 Year
  Sex: Male

DRUGS (3)
  1. GENTAMICINE [Suspect]
     Active Substance: GENTAMICIN
     Indication: ENDOCARDITIS
     Route: 042
     Dates: start: 20160205, end: 20160218
  2. OXACILLINE BASE [Suspect]
     Active Substance: OXACILLIN SODIUM
     Indication: ENDOCARDITIS
     Route: 042
     Dates: start: 20160206, end: 20160318
  3. OXACILLINE BASE [Suspect]
     Active Substance: OXACILLIN SODIUM
     Dosage: DOSE REDUCED
     Route: 065

REACTIONS (1)
  - Acute kidney injury [Recovering/Resolving]

NARRATIVE: CASE EVENT DATE: 201602
